FAERS Safety Report 4953403-0 (Version None)
Quarter: 2006Q1

REPORT INFORMATION
  Report Type: 
  Country: None (occurrence: None)
  Receive Date: 20060324
  Receipt Date: 20060320
  Transmission Date: 20060701
  Serious: Yes (Hospitalization)
  Sender: FDA-Public Use
  Company Number: ES-SANOFI-SYNTHELABO-F01200600808

PATIENT
  Sex: Male

DRUGS (8)
  1. OXALIPLATIN [Suspect]
     Indication: COLON CANCER
     Route: 042
  2. FLUOROURACIL [Suspect]
     Dosage: 300 MG BOLUS FOLLOWED BY 1200 MG INFUSION
     Route: 042
  3. LEUCOVORIN [Suspect]
     Route: 042
  4. BEVACIZUMAB [Suspect]
     Route: 042
     Dates: start: 20051121, end: 20051121
  5. PLAVIX [Concomitant]
  6. ACUPREL [Concomitant]
  7. NEOBRUFEN [Concomitant]
  8. OMEPRAZOLE [Concomitant]

REACTIONS (3)
  - APHASIA [None]
  - ARTERIAL THROMBOSIS [None]
  - HEMIPARESIS [None]
